FAERS Safety Report 6794451-8 (Version None)
Quarter: 2010Q2

REPORT INFORMATION
  Report Type: 
  Country: None (occurrence: None)
  Receive Date: 20100625
  Receipt Date: 20100611
  Transmission Date: 20101027
  Serious: Yes (Hospitalization, Other)
  Sender: FDA-Public Use
  Company Number: US-BAYER-200941651NA

PATIENT
  Age: 34 Year
  Sex: Female

DRUGS (3)
  1. YASMIN [Suspect]
     Indication: ORAL CONTRACEPTION
     Route: 048
     Dates: start: 20000901, end: 20080101
  2. OCELLA [Suspect]
     Indication: ORAL CONTRACEPTION
     Route: 048
     Dates: start: 20080101, end: 20091001
  3. NSAIDS [Concomitant]

REACTIONS (4)
  - ABDOMINAL PAIN UPPER [None]
  - GALLBLADDER INJURY [None]
  - PYREXIA [None]
  - URTICARIA [None]
